FAERS Safety Report 21090508 (Version 2)
Quarter: 2022Q4

REPORT INFORMATION
  Report Type: Spontaneous
  Country: None (occurrence: US)
  Receive Date: 20220715
  Receipt Date: 20221010
  Transmission Date: 20230112
  Serious: Yes (Other)
  Sender: FDA-Public Use
  Company Number: US-Edgewell Personal Care, LLC-2130932

PATIENT
  Age: 11 Year
  Sex: Male

DRUGS (1)
  1. BANANA BOAT (AVOBENZONE\HOMOSALATE\OCTISALATE\OCTOCRYLENE) [Suspect]
     Active Substance: AVOBENZONE\HOMOSALATE\OCTISALATE\OCTOCRYLENE
     Indication: Prophylaxis against solar radiation
     Route: 061
     Dates: start: 20220629, end: 20220629

REACTIONS (7)
  - Burns second degree [Recovering/Resolving]
  - Blister [Recovering/Resolving]
  - Skin exfoliation [Recovering/Resolving]
  - Pain [Recovering/Resolving]
  - Sunburn [Recovering/Resolving]
  - Erythema [Recovering/Resolving]
  - Rash [Recovering/Resolving]

NARRATIVE: CASE EVENT DATE: 20220629
